FAERS Safety Report 11976777 (Version 1)
Quarter: 2016Q1

REPORT INFORMATION
  Report Type: Spontaneous
  Country: US (occurrence: None)
  Receive Date: 20160128
  Receipt Date: 20160128
  Transmission Date: 20160526
  Serious: No
  Sender: FDA-Public Use
  Company Number: None

PATIENT
  Age: 42 Year
  Sex: Female

DRUGS (12)
  1. CARISPOPRODOL [Concomitant]
  2. BENEFIBER [Concomitant]
     Active Substance: STARCH, WHEAT
  3. HYDROCO/APAP [Concomitant]
     Active Substance: ACETAMINOPHEN\HYDROCODONE
  4. PAROXETINE [Concomitant]
     Active Substance: PAROXETINE\PAROXETINE HYDROCHLORIDE
  5. XGEVA [Concomitant]
     Active Substance: DENOSUMAB
  6. IBRANCE [Suspect]
     Active Substance: PALBOCICLIB
     Indication: BREAST CANCER
     Dosage: 1 CAP DAILY PO
     Route: 048
     Dates: start: 20151201, end: 201601
  7. ONDANSETRON [Concomitant]
     Active Substance: ONDANSETRON
  8. LEVOTHYROXIN [Concomitant]
     Active Substance: LEVOTHYROXINE
  9. LISONP/HCTZ [Concomitant]
  10. CYCLOBENZAPR [Concomitant]
  11. ZOLPIDEM ER [Concomitant]
     Active Substance: ZOLPIDEM\ZOLPIDEM TARTRATE
  12. ALPRAZOLAM. [Concomitant]
     Active Substance: ALPRAZOLAM

REACTIONS (1)
  - Therapy cessation [None]

NARRATIVE: CASE EVENT DATE: 201601
